FAERS Safety Report 9640899 (Version 2)
Quarter: 2013Q4

REPORT INFORMATION
  Report Type: Report from Study
  Country: US (occurrence: US)
  Receive Date: 20131023
  Receipt Date: 20131023
  Transmission Date: 20140711
  Serious: No
  Sender: FDA-Public Use
  Company Number: US-ABBVIE-11P-163-0706506-00

PATIENT
  Age: 32 Year
  Sex: Female
  Weight: 105.78 kg

DRUGS (4)
  1. LUPRON DEPOT 3.75 MG [Suspect]
     Indication: ENDOMETRIOSIS
     Dates: start: 201101
  2. LORATADINE [Concomitant]
     Indication: HYPERSENSITIVITY
  3. GLUCOPHAGE [Concomitant]
     Indication: POLYCYSTIC OVARIES
  4. VITAMIN B [Concomitant]
     Indication: VITAMIN SUPPLEMENTATION

REACTIONS (2)
  - Accident [Recovered/Resolved]
  - Back pain [Not Recovered/Not Resolved]
